FAERS Safety Report 21188113 (Version 1)
Quarter: 2022Q3

REPORT INFORMATION
  Report Type: Spontaneous
  Country: US (occurrence: US)
  Receive Date: 20220809
  Receipt Date: 20220809
  Transmission Date: 20221027
  Serious: Yes (Other)
  Sender: FDA-Public Use
  Company Number: US-NOVARTISTESTPH-NVSC2022US178050

PATIENT
  Sex: Male

DRUGS (1)
  1. ZOLGENSMA [Suspect]
     Active Substance: ONASEMNOGENE ABEPARVOVEC-XIOI
     Indication: Spinal muscular atrophy
     Dosage: 1.1 ? 1014 VECTOR GENOMES (VG) PER KG OF BODY WEIGHT, ONCE/SINGLE
     Route: 042
     Dates: start: 20220526

REACTIONS (1)
  - Troponin increased [Recovered/Resolved]
